FAERS Safety Report 10907600 (Version 10)
Quarter: 2015Q4

REPORT INFORMATION
  Report Type: Spontaneous
  Country: US (occurrence: US)
  Receive Date: 20150312
  Receipt Date: 20151116
  Transmission Date: 20160304
  Serious: Yes (Hospitalization, Other)
  Sender: FDA-Public Use
  Company Number: US-PFIZER INC-2015084129

PATIENT
  Age: 33 Year
  Sex: Female
  Weight: 41 kg

DRUGS (10)
  1. LYRICA [Suspect]
     Active Substance: PREGABALIN
     Indication: NERVE INJURY
     Dosage: 50 MG, 2X/DAY
     Route: 048
  2. CELEBREX [Concomitant]
     Active Substance: CELECOXIB
     Dosage: 200 MG, 2X/DAY
  3. XANAX [Concomitant]
     Active Substance: ALPRAZOLAM
     Indication: PANIC DISORDER
  4. BAYER ASPIRIN [Concomitant]
     Active Substance: ASPIRIN
     Indication: THROMBOSIS
  5. XANAX [Concomitant]
     Active Substance: ALPRAZOLAM
     Indication: ANXIETY
     Dosage: 1 MG, 2X/DAY
     Dates: start: 2014
  6. HYDROCODONE W/ACETAMINOPHEN [Concomitant]
     Active Substance: ACETAMINOPHEN\HYDROCODONE BITARTRATE
     Indication: PAIN
     Dosage: 7.5MG/325MG, 4X/DAY
     Dates: start: 2012
  7. LYRICA [Suspect]
     Active Substance: PREGABALIN
     Dosage: 100 MG, 3X5 DAILY
  8. BAYER ASPIRIN [Concomitant]
     Active Substance: ASPIRIN
     Indication: FIBROSIS
     Dosage: 325 MG, 1X/DAY
     Dates: start: 2013
  9. BAYER ASPIRIN [Concomitant]
     Active Substance: ASPIRIN
     Indication: PHLEBITIS
  10. LYRICA [Suspect]
     Active Substance: PREGABALIN
     Dosage: 75 MG, 3X/DAY
     Route: 048
     Dates: end: 20150228

REACTIONS (12)
  - Stress [Not Recovered/Not Resolved]
  - Victim of sexual abuse [Recovered/Resolved]
  - Paraesthesia [Not Recovered/Not Resolved]
  - Antisocial behaviour [Recovered/Resolved]
  - Overdose [Unknown]
  - Limb discomfort [Not Recovered/Not Resolved]
  - Aggression [Recovered/Resolved]
  - Nasopharyngitis [Unknown]
  - Depression [Not Recovered/Not Resolved]
  - Pain [Not Recovered/Not Resolved]
  - Hypoaesthesia [Not Recovered/Not Resolved]
  - Drug ineffective [Not Recovered/Not Resolved]

NARRATIVE: CASE EVENT DATE: 1999
